FAERS Safety Report 6063108-3 (Version None)
Quarter: 2009Q1

REPORT INFORMATION
  Report Type: 
  Country: None (occurrence: None)
  Receive Date: 20090203
  Receipt Date: 20090127
  Transmission Date: 20090719
  Serious: Yes (Other)
  Sender: FDA-Public Use
  Company Number: BR-PFIZER INC-2008098370

PATIENT

DRUGS (2)
  1. DETRUSITOL LA [Suspect]
     Route: 048
     Dates: start: 20081113, end: 20081117
  2. AMITRIPTYLINE HCL [Concomitant]

REACTIONS (2)
  - BLADDER DISORDER [None]
  - URINARY RETENTION [None]
